FAERS Safety Report 25875957 (Version 1)
Quarter: 2025Q4

REPORT INFORMATION
  Report Type: Spontaneous
  Country: US (occurrence: US)
  Receive Date: 20251003
  Receipt Date: 20251003
  Transmission Date: 20260118
  Serious: No
  Sender: ROCHE
  Company Number: US-ROCHE-10000398887

PATIENT
  Age: 40 Year
  Sex: Female
  Weight: 108.86 kg

DRUGS (2)
  1. OCREVUS [Suspect]
     Active Substance: OCRELIZUMAB
     Indication: Secondary progressive multiple sclerosis
     Route: 065
     Dates: start: 2019, end: 2022
  2. OCREVUS [Suspect]
     Active Substance: OCRELIZUMAB
     Indication: Relapsing-remitting multiple sclerosis
     Route: 042
     Dates: start: 20250924

REACTIONS (5)
  - Illness [Unknown]
  - Bronchitis [Unknown]
  - Ear infection [Unknown]
  - Multiple sclerosis relapse [Unknown]
  - Off label use [Unknown]

NARRATIVE: CASE EVENT DATE: 20250924
